FAERS Safety Report 6308426-6 (Version None)
Quarter: 2009Q3

REPORT INFORMATION
  Report Type: 
  Country: None (occurrence: None)
  Receive Date: 20090810
  Receipt Date: 20090729
  Transmission Date: 20100115
  Serious: Yes (Hospitalization)
  Sender: FDA-Public Use
  Company Number: 2009247088

PATIENT
  Sex: Female

DRUGS (1)
  1. FRAGMIN [Suspect]
     Indication: DEEP VEIN THROMBOSIS
     Dosage: 12500 IU, 1X/DAY, SUBCUTANEOUS 212500 IU SINGLE
     Route: 058

REACTIONS (3)
  - COAGULATION FACTOR X LEVEL INCREASED [None]
  - SKIN LACERATION [None]
  - SUICIDE ATTEMPT [None]
